FAERS Safety Report 14139776 (Version 1)
Quarter: 2017Q4

REPORT INFORMATION
  Report Type: Spontaneous
  Country: JP (occurrence: JP)
  Receive Date: 20171029
  Receipt Date: 20171029
  Transmission Date: 20180321
  Serious: Yes (Hospitalization, Disabling)
  Sender: FDA-Public Use
  Company Number: JP-BAXTER-2017BAX036942

PATIENT
  Age: 9 Decade
  Sex: Female

DRUGS (4)
  1. PREDONINE [Suspect]
     Active Substance: PREDNISOLONE
     Indication: HAEMATOLOGICAL MALIGNANCY
     Dosage: CHOP THERAPY
     Route: 065
     Dates: start: 201706
  2. VINCRISTINE SULFATE. [Suspect]
     Active Substance: VINCRISTINE SULFATE
     Indication: HAEMATOLOGICAL MALIGNANCY
     Dosage: CHOP THERAPY
     Route: 065
     Dates: start: 201706
  3. ENDOXAN 1G [Suspect]
     Active Substance: CYCLOPHOSPHAMIDE
     Indication: HAEMATOLOGICAL MALIGNANCY
     Dosage: CHOP THERAPY
     Route: 041
     Dates: start: 201706, end: 201706
  4. DOXORUBICIN HYDROCHLORIDE. [Suspect]
     Active Substance: DOXORUBICIN HYDROCHLORIDE
     Indication: HAEMATOLOGICAL MALIGNANCY
     Dosage: CHOP THERAPY
     Route: 065
     Dates: start: 201706

REACTIONS (2)
  - Urinary bladder atrophy [Not Recovered/Not Resolved]
  - Pyelonephritis [Recovered/Resolved]

NARRATIVE: CASE EVENT DATE: 201710
